FAERS Safety Report 7680708-5 (Version None)
Quarter: 2011Q3

REPORT INFORMATION
  Report Type: 
  Country: None (occurrence: None)
  Receive Date: 20110812
  Receipt Date: 20110803
  Transmission Date: 20111222
  Serious: Yes (Hospitalization)
  Sender: FDA-Public Use
  Company Number: JP-BRISTOL-MYERS SQUIBB COMPANY-15857451

PATIENT
  Age: 77 Year
  Sex: Female

DRUGS (1)
  1. AVAPRO [Suspect]
     Indication: HYPERTENSION
     Route: 048
     Dates: start: 20110408, end: 20110408

REACTIONS (5)
  - ASTHENIA [None]
  - HEAD DISCOMFORT [None]
  - DYSPNOEA [None]
  - FEELING ABNORMAL [None]
  - DIZZINESS [None]
